FAERS Safety Report 6675063-3 (Version None)
Quarter: 2010Q1

REPORT INFORMATION
  Report Type: 
  Country: None (occurrence: None)
  Receive Date: 20100331
  Receipt Date: 20090828
  Transmission Date: 20100710
  Serious: Yes (Other)
  Sender: FDA-Public Use
  Company Number: 2009240349

PATIENT
  Age: 73 Year
  Sex: Male
  Weight: 99.8 kg

DRUGS (3)
  1. SUTENT [Suspect]
     Indication: METASTATIC RENAL CELL CARCINOMA
     Dosage: 50 MG, 1X/DAY, ORAL
     Route: 048
     Dates: start: 20090531, end: 20090705
  2. DIOVANE (VALSARTAN) [Concomitant]
  3. AMLODIPINE BESYLATE [Concomitant]

REACTIONS (3)
  - GLOSSODYNIA [None]
  - HYPERTENSION [None]
  - PLATELET COUNT DECREASED [None]
